FAERS Safety Report 13539231 (Version 6)
Quarter: 2018Q3

REPORT INFORMATION
  Report Type: Report from Study
  Country: DK (occurrence: DK)
  Receive Date: 20170512
  Receipt Date: 20180903
  Transmission Date: 20181010
  Serious: Yes (Death, Hospitalization)
  Sender: FDA-Public Use
  Company Number: DK-CELGENEUS-DNK-2017021728

PATIENT
  Age: 84 Year
  Sex: Male

DRUGS (56)
  1. FURIX [Concomitant]
     Active Substance: FUROSEMIDE
     Indication: DIURETIC THERAPY
     Dosage: 40 MILLIGRAM
     Route: 041
     Dates: start: 20170110, end: 20170124
  2. MEROPENEM. [Concomitant]
     Active Substance: MEROPENEM
     Dosage: 1000 MILLIGRAM
     Route: 041
     Dates: start: 20170226, end: 20170307
  3. CIPROFLOXACIN. [Concomitant]
     Active Substance: CIPROFLOXACIN
     Dosage: 1000 MILLIGRAM
     Route: 048
     Dates: start: 20170220, end: 20170222
  4. BIOCLAVID [Concomitant]
     Active Substance: AMOXICILLIN\CLAVULANIC ACID
     Indication: INFECTION
     Dosage: 1500 MILLIGRAM
     Route: 048
     Dates: start: 20170118, end: 20170123
  5. REVLIMID [Suspect]
     Active Substance: LENALIDOMIDE
     Route: 048
     Dates: start: 20170307, end: 20170316
  6. METFORMIN [Concomitant]
     Active Substance: METFORMIN HYDROCHLORIDE
     Indication: PRODUCT USED FOR UNKNOWN INDICATION
     Dosage: 1000 MILLIGRAM
     Route: 048
     Dates: start: 20151207, end: 20170110
  7. AMLODIPINE [Concomitant]
     Active Substance: AMLODIPINE BESYLATE
     Indication: HYPERTENSION
     Dosage: 10 MILLIGRAM
     Route: 048
     Dates: start: 20151207, end: 20170203
  8. GANGIDEN [Concomitant]
     Indication: CONSTIPATION
     Dosage: 4 TABLET
     Route: 048
     Dates: start: 20170108, end: 20170119
  9. HYDROXYUREA. [Concomitant]
     Active Substance: HYDROXYUREA
     Indication: PRODUCT USED FOR UNKNOWN INDICATION
     Dosage: 500 MILLIGRAM
     Route: 048
     Dates: start: 20170111, end: 20170123
  10. MOXIFLOXACIN. [Concomitant]
     Active Substance: MOXIFLOXACIN
     Indication: INFECTION
     Dosage: 400 MILLIGRAM
     Route: 048
     Dates: start: 20170123, end: 20170202
  11. ONDANSETRON [Concomitant]
     Active Substance: ONDANSETRON
     Indication: ANTIEMETIC SUPPORTIVE CARE
     Dosage: 16 MILLIGRAM
     Route: 048
     Dates: start: 20170124, end: 20170203
  12. ONDANSETRON [Concomitant]
     Active Substance: ONDANSETRON
     Dosage: 16 MILLIGRAM
     Route: 048
     Dates: start: 20170317, end: 20170319
  13. LACTULOSE. [Concomitant]
     Active Substance: LACTULOSE
     Indication: CONSTIPATION
     Dosage: 15ML
     Route: 048
     Dates: start: 20170228, end: 20170313
  14. MYCOSTATIN [Concomitant]
     Active Substance: NYSTATIN
     Dosage: 5ML
     Route: 048
     Dates: start: 20170323, end: 20170324
  15. PIP?TAZO [Concomitant]
     Active Substance: PIPERACILLIN SODIUM\TAZOBACTAM SODIUM
     Dosage: 16 GRAM
     Route: 041
     Dates: start: 20170321, end: 20170323
  16. ALLOPURINOL. [Concomitant]
     Active Substance: ALLOPURINOL
     Dosage: 150 MILLIGRAM
     Route: 048
     Dates: start: 20170308, end: 20170317
  17. REVLIMID [Suspect]
     Active Substance: LENALIDOMIDE
     Indication: ACUTE MYELOID LEUKAEMIA
     Route: 048
     Dates: start: 20170124, end: 20170213
  18. REVLIMID [Suspect]
     Active Substance: LENALIDOMIDE
     Route: 048
     Dates: start: 20170320, end: 20170324
  19. BENZYL PENICILLIN [Concomitant]
     Indication: INFECTION
     Dosage: 2400 MILLIGRAM
     Route: 041
     Dates: start: 20170106, end: 20170109
  20. PIP?TAZO [Concomitant]
     Active Substance: PIPERACILLIN SODIUM\TAZOBACTAM SODIUM
     Indication: INFECTION
     Dosage: 16 GRAM
     Route: 041
     Dates: start: 20170109, end: 20170112
  21. FURIX [Concomitant]
     Active Substance: FUROSEMIDE
     Dosage: 40 MILLIGRAM
     Route: 041
     Dates: start: 20170117, end: 20170224
  22. MEROPENEM. [Concomitant]
     Active Substance: MEROPENEM
     Indication: INFECTION
     Dosage: 1000 MILLIGRAM
     Route: 048
     Dates: start: 20170112, end: 20170117
  23. NOXAFIL [Concomitant]
     Active Substance: POSACONAZOLE
     Dosage: 300 MILLIGRAM
     Route: 048
     Dates: start: 20170307, end: 20170324
  24. TAMIFLU [Concomitant]
     Active Substance: OSELTAMIVIR PHOSPHATE
     Indication: INFECTION
     Dosage: 30 MILLIGRAM
     Route: 048
     Dates: start: 20170222, end: 20170303
  25. BIOCLAVID [Concomitant]
     Active Substance: AMOXICILLIN\CLAVULANIC ACID
     Dosage: 500+125MG
     Route: 048
     Dates: start: 20170220, end: 20170221
  26. FRAGMIN [Concomitant]
     Active Substance: DALTEPARIN SODIUM
     Indication: THROMBOSIS PROPHYLAXIS
     Dosage: 5000 IU (INTERNATIONAL UNIT)
     Route: 058
     Dates: start: 20170124, end: 20170219
  27. MAGNESIA [Concomitant]
     Active Substance: MAGNESIUM HYDROXIDE
     Indication: CONSTIPATION
     Dosage: 1000 MILLIGRAM
     Route: 048
     Dates: start: 20170227, end: 20170302
  28. MYCOSTATIN [Concomitant]
     Active Substance: NYSTATIN
     Indication: INFECTION
     Dosage: 5ML
     Route: 048
     Dates: start: 20170302, end: 20170309
  29. CORODIL [Concomitant]
     Indication: PRODUCT USED FOR UNKNOWN INDICATION
     Dosage: 15ML
     Route: 065
  30. ALLOPURINOL. [Concomitant]
     Active Substance: ALLOPURINOL
     Dosage: 150 MILLIGRAM
     Route: 041
     Dates: start: 20170124, end: 20170131
  31. KALEORID [Concomitant]
     Active Substance: POTASSIUM CHLORIDE
     Dosage: 750 MILLIGRAM
     Route: 048
     Dates: start: 20170322, end: 20170324
  32. NOXAFIL [Concomitant]
     Active Substance: POSACONAZOLE
     Indication: PROPHYLAXIS
     Dosage: 300 MILLIGRAM
     Route: 048
     Dates: start: 20170224, end: 20170228
  33. CONCIDAS [Concomitant]
     Indication: INFECTION
     Dosage: 70MG /50MG
     Route: 041
     Dates: start: 20170221, end: 20170224
  34. METRONIDAZOLE. [Concomitant]
     Active Substance: METRONIDAZOLE
     Indication: INFECTION
     Dosage: 1500 MILLIGRAM
     Route: 048
     Dates: start: 20170223, end: 20170224
  35. NIDAZOL [Concomitant]
     Indication: PROPHYLAXIS
     Dosage: 200 MILLIGRAM
     Route: 048
     Dates: start: 20170123, end: 20170221
  36. LAXOBERAL [Concomitant]
     Active Substance: SODIUM PICOSULFATE
     Indication: CONSTIPATION
     Dosage: 15 MILLIGRAM/MILLILITERS
     Route: 048
     Dates: start: 20170228, end: 20170302
  37. ASA [Concomitant]
     Active Substance: ASPIRIN
     Indication: THROMBOSIS PROPHYLAXIS
     Dosage: 150 MILLIGRAM
     Route: 048
     Dates: start: 20151207, end: 20170125
  38. ALLOPURINOL. [Concomitant]
     Active Substance: ALLOPURINOL
     Indication: PROPHYLAXIS
     Dosage: 150 MILLIGRAM
     Route: 041
     Dates: start: 20170110, end: 20170118
  39. FURIX [Concomitant]
     Active Substance: FUROSEMIDE
     Dosage: 40 MILLIGRAM
     Route: 048
     Dates: start: 20170310, end: 20170313
  40. KALEORID [Concomitant]
     Active Substance: POTASSIUM CHLORIDE
     Indication: BLOOD POTASSIUM
     Dosage: 750 MILLIGRAM
     Route: 048
     Dates: start: 20170111, end: 20170126
  41. CIPROFLOXACIN. [Concomitant]
     Active Substance: CIPROFLOXACIN
     Dosage: 1000 MILLIGRAM
     Route: 048
     Dates: start: 20170223, end: 20170224
  42. NOXAFIL [Concomitant]
     Active Substance: POSACONAZOLE
     Indication: INFECTION
     Dosage: 300 MILLIGRAM
     Route: 048
     Dates: start: 20170113, end: 20170119
  43. METRONIDAZOLE. [Concomitant]
     Active Substance: METRONIDAZOLE
     Dosage: 1500 MILLIGRAM
     Route: 048
     Dates: start: 20170316, end: 20170317
  44. ARA?C [Suspect]
     Active Substance: CYTARABINE
     Indication: ACUTE MYELOID LEUKAEMIA
     Route: 065
     Dates: start: 20170124, end: 20170205
  45. ARA?C [Suspect]
     Active Substance: CYTARABINE
     Route: 058
     Dates: start: 20170307, end: 20170316
  46. SIMVASTATIN. [Concomitant]
     Active Substance: SIMVASTATIN
     Indication: HYPERCHOLESTEROLAEMIA
     Dosage: 20 MILLIGRAM
     Route: 048
     Dates: start: 20151207, end: 20170110
  47. FURIX [Concomitant]
     Active Substance: FUROSEMIDE
     Dosage: 40 MILLIGRAM
     Route: 041
     Dates: start: 20170224, end: 20170309
  48. MEROPENEM. [Concomitant]
     Active Substance: MEROPENEM
     Dosage: 1000 MILLIGRAM
     Route: 041
     Dates: start: 20170222, end: 20170224
  49. CIPROFLOXACIN. [Concomitant]
     Active Substance: CIPROFLOXACIN
     Indication: INFECTION
     Dosage: 1000 MILLIGRAM
     Route: 048
     Dates: start: 20170113, end: 20170123
  50. CONCIDAS [Concomitant]
     Dosage: 70 MILLIGRAM
     Route: 041
     Dates: start: 20170228, end: 20170307
  51. MOXIFLOXACIN. [Concomitant]
     Active Substance: MOXIFLOXACIN
     Dosage: 400 MILLIGRAM
     Route: 048
     Dates: start: 20170307, end: 20170312
  52. METFORMIN [Concomitant]
     Active Substance: METFORMIN HYDROCHLORIDE
     Dosage: 1000 MILLIGRAM
     Route: 048
     Dates: start: 20170113, end: 20170320
  53. CARVEDIL [Concomitant]
     Active Substance: CARVEDILOL
     Indication: HYPERTENSION
     Dosage: 20+12.5 MG
     Route: 048
     Dates: start: 20151207, end: 20170202
  54. PIP?TAZO [Concomitant]
     Active Substance: PIPERACILLIN SODIUM\TAZOBACTAM SODIUM
     Dosage: 16 GRAM
     Route: 041
     Dates: start: 20170224, end: 20170226
  55. PIP?TAZO [Concomitant]
     Active Substance: PIPERACILLIN SODIUM\TAZOBACTAM SODIUM
     Dosage: 16 GRAM
     Route: 041
     Dates: start: 20170316, end: 20170321
  56. INSUMAN [Concomitant]
     Active Substance: INSULIN HUMAN
     Indication: CONSTIPATION
     Route: 058
     Dates: start: 20170228, end: 20170310

REACTIONS (5)
  - Hypotension [Recovered/Resolved]
  - Pain in extremity [Recovered/Resolved]
  - Myocardial infarction [Fatal]
  - Febrile neutropenia [Not Recovered/Not Resolved]
  - Pyrexia [Recovered/Resolved]

NARRATIVE: CASE EVENT DATE: 20170201
